FAERS Safety Report 16948807 (Version 1)
Quarter: 2019Q4

REPORT INFORMATION
  Report Type: Spontaneous
  Country: AT (occurrence: AT)
  Receive Date: 20191023
  Receipt Date: 20191023
  Transmission Date: 20200122
  Serious: Yes (Other)
  Sender: FDA-Public Use
  Company Number: NVSC2019AT010029

PATIENT
  Age: 77 Year
  Sex: Male

DRUGS (2)
  1. EXFORGE [Suspect]
     Active Substance: AMLODIPINE BESYLATE\VALSARTAN
     Indication: PRODUCT USED FOR UNKNOWN INDICATION
     Dosage: 5 /160
     Route: 065
  2. COSAAR PLUS [Concomitant]
     Active Substance: HYDROCHLOROTHIAZIDE\LOSARTAN
     Indication: HYPERTENSION
     Dosage: UNK (FOR ABOUT 10 YEARS )
     Route: 065

REACTIONS (4)
  - Cardiac failure [Unknown]
  - Joint swelling [Unknown]
  - Dyspnoea [Unknown]
  - Heart rate irregular [Unknown]
